FAERS Safety Report 12659120 (Version 1)
Quarter: 2016Q3

REPORT INFORMATION
  Report Type: Spontaneous
  Country: US (occurrence: None)
  Receive Date: 20160816
  Receipt Date: 20160816
  Transmission Date: 20161109
  Serious: No
  Sender: FDA-Public Use
  Company Number: None

PATIENT
  Age: 62 Year
  Sex: Female

DRUGS (4)
  1. COPAXONE [Suspect]
     Active Substance: GLATIRAMER ACETATE
     Indication: HYPOTHYROIDISM
     Dosage: 3 TIMES PER WEEK
     Dates: start: 20160806
  2. COPAXONE [Suspect]
     Active Substance: GLATIRAMER ACETATE
     Indication: MULTIPLE SCLEROSIS
     Dosage: 3 TIMES PER WEEK
     Dates: start: 20160806
  3. COPAXONE [Suspect]
     Active Substance: GLATIRAMER ACETATE
     Indication: ATTENTION DEFICIT/HYPERACTIVITY DISORDER
     Dosage: 3 TIMES PER WEEK
     Dates: start: 20160806
  4. COPAXONE [Suspect]
     Active Substance: GLATIRAMER ACETATE
     Indication: GASTROOESOPHAGEAL REFLUX DISEASE
     Dosage: 3 TIMES PER WEEK
     Dates: start: 20160806

REACTIONS (2)
  - Nausea [None]
  - Diarrhoea [None]

NARRATIVE: CASE EVENT DATE: 20160814
